FAERS Safety Report 8078201-3 (Version None)
Quarter: 2012Q1

REPORT INFORMATION
  Report Type: 
  Country: None (occurrence: None)
  Receive Date: 20120127
  Receipt Date: 20110302
  Transmission Date: 20120608
  Serious: No
  Sender: FDA-Public Use
  Company Number: US-ABBOTT-10P-163-0692455-00

PATIENT
  Age: 50 Year
  Sex: Male

DRUGS (12)
  1. XANAX XR [Concomitant]
     Indication: SLEEP DISORDER THERAPY
     Dosage: AT HS
  2. ASCORBIC ACID [Concomitant]
     Indication: PRODUCT USED FOR UNKNOWN INDICATION
  3. CALCIUM W/VITAMIN D [Concomitant]
     Indication: SUPPLEMENTATION THERAPY
  4. XANAX [Concomitant]
     Dosage: AT BEDTIME
  5. CALCIUM [Concomitant]
     Indication: PRODUCT USED FOR UNKNOWN INDICATION
  6. PREDNISONE [Concomitant]
     Indication: PRODUCT USED FOR UNKNOWN INDICATION
     Dosage: TAPERING DOSE 5 MG STARTING TOMORROW DOWN FROM 10 MG LAST WEEK
  7. GLUCOSAMINE CHONDROITIN [Concomitant]
     Indication: PRODUCT USED FOR UNKNOWN INDICATION
     Dosage: TWO TABS DAILY
  8. XANAX [Concomitant]
     Dosage: AT BEDTIME
  9. VITAMIN D [Concomitant]
     Indication: PRODUCT USED FOR UNKNOWN INDICATION
  10. HUMIRA [Suspect]
     Indication: CROHN'S DISEASE
     Dates: start: 20101123
  11. XANAX [Concomitant]
     Indication: PRODUCT USED FOR UNKNOWN INDICATION
     Dosage: UP TO 3MG DAILY
  12. MULTI-VITAMIN [Concomitant]
     Indication: PRODUCT USED FOR UNKNOWN INDICATION

REACTIONS (8)
  - PAIN IN EXTREMITY [None]
  - ORAL CANDIDIASIS [None]
  - ABDOMINAL PAIN UPPER [None]
  - PARAESTHESIA [None]
  - ARTHRALGIA [None]
  - MUSCLE TWITCHING [None]
  - ARTHRITIS [None]
  - MUSCULOSKELETAL PAIN [None]
